FAERS Safety Report 8695140 (Version 2)
Quarter: 2013Q4

REPORT INFORMATION
  Report Type: Spontaneous
  Country: US (occurrence: US)
  Receive Date: 20120731
  Receipt Date: 20131107
  Transmission Date: 20140711
  Serious: Yes (Other)
  Sender: FDA-Public Use
  Company Number: US-009507513-1207USA009889

PATIENT
  Age: 57 Year
  Sex: Male

DRUGS (1)
  1. ZOCOR [Suspect]
     Dosage: 40 MG, UNK
     Route: 048

REACTIONS (17)
  - Restrictive pulmonary disease [Unknown]
  - Upper respiratory tract infection [Unknown]
  - Fall [Unknown]
  - Respiratory gas exchange disorder [Unknown]
  - Hypoventilation [Unknown]
  - Activities of daily living impaired [Unknown]
  - Hypoxia [Unknown]
  - Device malfunction [Unknown]
  - Dyspnoea exertional [Unknown]
  - Muscular weakness [Unknown]
  - Movement disorder [Unknown]
  - Body mass index decreased [Unknown]
  - Viral infection [Unknown]
  - Dyspnoea [Unknown]
  - Myopathy [Unknown]
  - Fatigue [Unknown]
  - Malaise [Unknown]
